FAERS Safety Report 17104778 (Version 1)
Quarter: 2019Q4

REPORT INFORMATION
  Report Type: Report from Study
  Country: US (occurrence: US)
  Receive Date: 20191203
  Receipt Date: 20191203
  Transmission Date: 20200122
  Serious: Yes (Hospitalization)
  Sender: FDA-Public Use
  Company Number: US-ROCHE-2482519

PATIENT
  Age: 59 Year
  Sex: Female

DRUGS (2)
  1. ATEZOLIZUMAB. [Suspect]
     Active Substance: ATEZOLIZUMAB
     Indication: OVARIAN CANCER
     Dosage: ON 12/NOV/2019, PATIENT RECEIVED 1200 MG OF ATEZOLIZUMAB
     Route: 042
     Dates: start: 20191022
  2. PRS 343 [Suspect]
     Active Substance: CINREBAFUSP ALFA
     Indication: OVARIAN CANCER
     Dosage: ON 12/NOV/2019, PATIENT RECEIVED 2.5 MG/KG (CYCLE 2)
     Route: 042
     Dates: start: 20191022

REACTIONS (1)
  - Infusion related reaction [Not Recovered/Not Resolved]

NARRATIVE: CASE EVENT DATE: 20191112
